FAERS Safety Report 19164310 (Version 1)
Quarter: 2021Q2

REPORT INFORMATION
  Report Type: Report from Study
  Country: ES (occurrence: ES)
  Receive Date: 20210421
  Receipt Date: 20210421
  Transmission Date: 20210717
  Serious: Yes (Other)
  Sender: FDA-Public Use
  Company Number: ES-PFIZER INC-2021333165

PATIENT
  Sex: Female

DRUGS (2)
  1. METHYLPREDNISOLONE SODIUM SUCCINATE. [Suspect]
     Active Substance: METHYLPREDNISOLONE SODIUM SUCCINATE
     Dosage: 1.16 MG
     Route: 065
  2. TOCILIZUMAB. [Suspect]
     Active Substance: TOCILIZUMAB
     Indication: COVID-19
     Dosage: 400 MG (2 DOSES)
     Route: 042

REACTIONS (7)
  - Maternal exposure during pregnancy [Unknown]
  - Hepatotoxicity [Recovered/Resolved]
  - Skin lesion [Unknown]
  - Bacteriuria [Not Recovered/Not Resolved]
  - Cytomegalovirus infection reactivation [Unknown]
  - Off label use [Unknown]
  - Fungal infection [Unknown]
